FAERS Safety Report 12302791 (Version 1)
Quarter: 2016Q2

REPORT INFORMATION
  Report Type: Spontaneous
  Country: US (occurrence: US)
  Receive Date: 20160425
  Receipt Date: 20160425
  Transmission Date: 20160815
  Serious: No
  Sender: FDA-Public Use
  Company Number: US-LUPIN PHARMACEUTICALS INC.-2016-00677

PATIENT
  Sex: Female
  Weight: 54.93 kg

DRUGS (2)
  1. VALSARTAN TABLETS USP 80MG [Suspect]
     Active Substance: VALSARTAN
     Indication: HYPERTENSION
     Route: 048
     Dates: start: 201509, end: 20151229
  2. VALSARTAN TABLETS USP 80MG [Suspect]
     Active Substance: VALSARTAN
     Route: 048
     Dates: start: 20160205

REACTIONS (2)
  - Muscle spasms [Recovered/Resolved]
  - Diarrhoea [Recovered/Resolved]
